FAERS Safety Report 9197714 (Version 3)
Quarter: 2013Q3

REPORT INFORMATION
  Report Type: Report from Study
  Country: US (occurrence: US)
  Receive Date: 20130328
  Receipt Date: 20130702
  Transmission Date: 20140515
  Serious: Yes (Hospitalization)
  Sender: FDA-Public Use
  Company Number: US-BAYER-2013-036878

PATIENT
  Age: 73 Year
  Sex: Male

DRUGS (2)
  1. STIVARGA [Suspect]
     Indication: SOFT TISSUE CANCER
     Dosage: DAILY DOSE 160 MG
     Route: 048
     Dates: start: 20121128
  2. STIVARGA [Suspect]
     Indication: SOFT TISSUE CANCER
     Dosage: DAILY DOSE 160 MG
     Route: 048
     Dates: start: 20130228, end: 201303

REACTIONS (4)
  - Adverse drug reaction [None]
  - Anaemia [None]
  - Haemorrhage [None]
  - Off label use [None]
